FAERS Safety Report 4873153-9 (Version None)
Quarter: 2006Q1

REPORT INFORMATION
  Report Type: 
  Country: None (occurrence: None)
  Receive Date: 20060105
  Receipt Date: 20060103
  Transmission Date: 20060701
  Serious: Yes (Life-Threatening)
  Sender: FDA-Public Use
  Company Number: FR-GLAXOSMITHKLINE-B0405152A

PATIENT
  Age: 47 Year
  Sex: Male
  Weight: 103 kg

DRUGS (3)
  1. CLAMOXYL [Suspect]
     Indication: HELICOBACTER INFECTION
     Dosage: 1.5G PER DAY
     Route: 048
     Dates: start: 20051020, end: 20051029
  2. NAXY [Suspect]
     Indication: HELICOBACTER INFECTION
     Dosage: 1G PER DAY
     Route: 048
     Dates: start: 20051020, end: 20051029
  3. NEXIUM [Concomitant]
     Indication: HELICOBACTER INFECTION
     Route: 065

REACTIONS (8)
  - ANGINA PECTORIS [None]
  - ANGIONEUROTIC OEDEMA [None]
  - ERYTHEMA [None]
  - FACE OEDEMA [None]
  - LOCALISED OEDEMA [None]
  - MYOCARDIAL INFARCTION [None]
  - RASH [None]
  - TONGUE OEDEMA [None]
